FAERS Safety Report 5696566-4 (Version None)
Quarter: 2008Q2

REPORT INFORMATION
  Report Type: 
  Country: None (occurrence: None)
  Receive Date: 20080408
  Receipt Date: 20080408
  Transmission Date: 20081010
  Serious: No
  Sender: FDA-Public Use
  Company Number: None

PATIENT
  Age: 23 Year
  Sex: Male
  Weight: 104 kg

DRUGS (1)
  1. HEPARIN [Suspect]
     Indication: CENTRAL VENOUS CATHETERISATION
     Dosage: 1-5ML DAILY IV
     Route: 042
     Dates: start: 20080319, end: 20080327

REACTIONS (6)
  - ASTHENIA [None]
  - DECREASED APPETITE [None]
  - DISORIENTATION [None]
  - DIZZINESS [None]
  - DYSPNOEA [None]
  - NIGHT SWEATS [None]
